FAERS Safety Report 7434565-2 (Version None)
Quarter: 2011Q2

REPORT INFORMATION
  Report Type: 
  Country: None (occurrence: None)
  Receive Date: 20110425
  Receipt Date: 20110419
  Transmission Date: 20111010
  Serious: No
  Sender: FDA-Public Use
  Company Number: US-B.I. PHARMACEUTICALS,INC./RIDGEFIELD-2011-BP-03430BP

PATIENT
  Age: 61 Year
  Sex: Female
  Weight: 82.1 kg

DRUGS (18)
  1. AMANTADINE HCL [Concomitant]
     Dosage: 400 MG
     Route: 048
  2. FLINTSTONES PLUS IRON [Concomitant]
     Dosage: 2000 MG
     Route: 048
  3. SOMA [Concomitant]
     Dosage: 1400 MG
     Route: 048
  4. VOLTAREN [Concomitant]
  5. LORTAB [Concomitant]
     Indication: PAIN
     Route: 048
  6. PROPANOLOL HCL [Concomitant]
     Dosage: 20 MG
     Route: 048
  7. PRADAXA [Suspect]
     Indication: DEEP VEIN THROMBOSIS
     Dosage: 300 MG
     Route: 048
     Dates: start: 20110105, end: 20110202
  8. KLONOPIN [Concomitant]
     Dosage: 2 MG
     Route: 048
  9. PROMETHAZINE HCL [Concomitant]
     Route: 048
  10. DIOVAN [Concomitant]
     Dosage: 160 MG
     Route: 048
  11. NITROGLYCERIN [Concomitant]
     Route: 062
  12. SINEMET [Concomitant]
     Route: 048
  13. XOPENEX [Concomitant]
     Dosage: 8 PUF
     Route: 055
  14. ZANTAC [Concomitant]
     Dosage: 300 MG
     Route: 048
  15. COMTAN [Concomitant]
     Dosage: 800 MG
     Route: 048
  16. METFORMIN [Concomitant]
     Dosage: 1000 MG
     Route: 048
  17. COUMADIN [Concomitant]
     Dosage: 5 MG
     Route: 048
  18. ZOLOFT [Concomitant]
     Dosage: 50 MG
     Route: 048

REACTIONS (1)
  - TREMOR [None]
